FAERS Safety Report 20489010 (Version 6)
Quarter: 2022Q2

REPORT INFORMATION
  Report Type: Report from Study
  Country: IL (occurrence: IL)
  Receive Date: 20220218
  Receipt Date: 20220609
  Transmission Date: 20220720
  Serious: Yes (Other)
  Sender: FDA-Public Use
  Company Number: IL-JNJFOC-20220222597

PATIENT
  Age: 69 Year
  Sex: Male

DRUGS (17)
  1. ESKETAMINE [Suspect]
     Active Substance: ESKETAMINE
     Indication: Depression
     Dosage: 56 MG (2 DEVICES)
     Dates: start: 20211212, end: 20211212
  2. ESKETAMINE [Suspect]
     Active Substance: ESKETAMINE
     Dosage: 3 DEVICES
     Dates: start: 20211215, end: 20211215
  3. ESKETAMINE [Suspect]
     Active Substance: ESKETAMINE
     Dosage: 2 DEVICES
     Dates: start: 20211219, end: 20211219
  4. ESKETAMINE [Suspect]
     Active Substance: ESKETAMINE
     Dosage: 2 DEVICES
     Dates: start: 20211222, end: 20211222
  5. ESKETAMINE [Suspect]
     Active Substance: ESKETAMINE
     Dosage: 2 DEVICES
     Dates: start: 20211229, end: 20211229
  6. ESKETAMINE [Suspect]
     Active Substance: ESKETAMINE
     Dosage: 3 DEVICES
     Dates: start: 20220102, end: 20220102
  7. ESKETAMINE [Suspect]
     Active Substance: ESKETAMINE
     Dosage: 3 DEVICES
     Dates: start: 20220105, end: 20220105
  8. ESKETAMINE [Suspect]
     Active Substance: ESKETAMINE
     Dosage: 3 DEVICES
     Dates: start: 20220112, end: 20220112
  9. ESKETAMINE [Suspect]
     Active Substance: ESKETAMINE
     Dosage: 3 DEVICES
     Dates: start: 20220119, end: 20220119
  10. ESKETAMINE [Suspect]
     Active Substance: ESKETAMINE
     Dosage: 2 DEVICES
     Dates: start: 20220126, end: 20220126
  11. ESKETAMINE [Suspect]
     Active Substance: ESKETAMINE
     Dosage: 2 DEVICES
     Dates: start: 20220202, end: 20220202
  12. ESKETAMINE [Suspect]
     Active Substance: ESKETAMINE
     Dosage: 2 DEVICES
     Dates: start: 20220302, end: 20220302
  13. ESKETAMINE [Suspect]
     Active Substance: ESKETAMINE
     Dosage: 3 DEVICES
     Dates: start: 20220316, end: 20220316
  14. ESKETAMINE [Suspect]
     Active Substance: ESKETAMINE
     Dosage: 2 DEVICES
     Dates: start: 20220323, end: 20220323
  15. ESKETAMINE [Suspect]
     Active Substance: ESKETAMINE
     Dosage: 56 MG (2 DEVICES)
     Dates: start: 20220330, end: 20220330
  16. ESKETAMINE [Suspect]
     Active Substance: ESKETAMINE
     Dosage: 56 MG (2 DEVICES)
     Dates: start: 20220406, end: 20220406
  17. ESKETAMINE [Suspect]
     Active Substance: ESKETAMINE
     Dosage: 56 MG (2 DEVICES)
     Dates: start: 20220413, end: 20220413

REACTIONS (5)
  - Loss of consciousness [Recovered/Resolved with Sequelae]
  - Pain in extremity [Recovered/Resolved]
  - Hypertension [Recovered/Resolved]
  - Back pain [Not Recovered/Not Resolved]
  - Dissociative disorder [Recovered/Resolved]

NARRATIVE: CASE EVENT DATE: 20211215
